FAERS Safety Report 4551567-4 (Version None)
Quarter: 2005Q1

REPORT INFORMATION
  Report Type: 
  Country: None (occurrence: None)
  Receive Date: 20050111
  Receipt Date: 20050103
  Transmission Date: 20050727
  Serious: Yes (Life-Threatening)
  Sender: FDA-Public Use
  Company Number: S05-USA-00011-01

PATIENT
  Age: 14 Year
  Sex: Female

DRUGS (1)
  1. LEXAPRO [Suspect]

REACTIONS (4)
  - IMPULSIVE BEHAVIOUR [None]
  - INJURY ASPHYXIATION [None]
  - MENTAL DISORDER [None]
  - SUICIDE ATTEMPT [None]
